FAERS Safety Report 9095443 (Version 2)
Quarter: 2013Q1

REPORT INFORMATION
  Report Type: Spontaneous
  Country: MX (occurrence: MX)
  Receive Date: 20130220
  Receipt Date: 20130301
  Transmission Date: 20140127
  Serious: Yes (Other)
  Sender: FDA-Public Use
  Company Number: PHHY2013MX016125

PATIENT
  Age: 90 Year
  Sex: Female

DRUGS (2)
  1. EXFORGE [Suspect]
     Indication: HYPERTENSION
     Dosage: 1 DF(160 MG VALS / 10 MG AMLO), DAILY
     Route: 048
     Dates: start: 2012
  2. ROFUCAL [Concomitant]
     Indication: DIURETIC THERAPY
     Dosage: 1 DF, (25 MG), DAILY
     Route: 048

REACTIONS (2)
  - Convulsion [Not Recovered/Not Resolved]
  - General physical condition abnormal [Unknown]
